FAERS Safety Report 7000880-X (Version None)
Quarter: 2010Q3

REPORT INFORMATION
  Report Type: 
  Country: None (occurrence: None)
  Receive Date: 20100920
  Receipt Date: 20100908
  Transmission Date: 20110219
  Serious: Yes (Hospitalization)
  Sender: FDA-Public Use
  Company Number: PHHY2010SE59304

PATIENT
  Sex: Male
  Weight: 78 kg

DRUGS (10)
  1. DIOVAN [Suspect]
     Dosage: 80 MG, UNK
     Dates: end: 20100525
  2. FUROSEMIDE [Suspect]
     Dosage: 40 MG, UNK
     Dates: end: 20100525
  3. MATRIFEN [Suspect]
     Indication: FRACTURE
     Dosage: 12 MICROGRAM PER HOUR
  4. KALCIPOS [Concomitant]
     Dosage: 500 MG/400 IE, UNK
  5. PAMOL [Concomitant]
     Dosage: 500 MG, UNK
  6. SIMVASTATIN [Concomitant]
  7. CITALOPRAM HYDROBROMIDE [Concomitant]
  8. OXASCAND [Concomitant]
     Dosage: 15 MG, UNK
  9. ASPIRIN [Concomitant]
  10. LAKTULOSE [Concomitant]
     Dosage: 75 MG, UNK

REACTIONS (5)
  - BLOOD CREATININE INCREASED [None]
  - DECREASED APPETITE [None]
  - NAUSEA [None]
  - PAIN [None]
  - URINARY RETENTION [None]
